FAERS Safety Report 19325471 (Version 2)
Quarter: 2021Q3

REPORT INFORMATION
  Report Type: Report from Study
  Country: GB (occurrence: GB)
  Receive Date: 20210528
  Receipt Date: 20210812
  Transmission Date: 20211014
  Serious: Yes (Other)
  Sender: FDA-Public Use
  Company Number: NVSC2021GB110957

PATIENT
  Age: 29 Year
  Sex: Female

DRUGS (1)
  1. HYRIMOZ [Suspect]
     Active Substance: ADALIMUMAB-ADAZ
     Indication: PSORIASIS
     Dosage: UNK, Q2W(40MG/0.8ML)FORTNIGHTLY
     Route: 065

REACTIONS (2)
  - Lower respiratory tract infection [Unknown]
  - Product dose omission issue [Unknown]
